FAERS Safety Report 9525740 (Version 1)
Quarter: 2013Q3

REPORT INFORMATION
  Report Type: Spontaneous
  Country: US (occurrence: US)
  Receive Date: 20130916
  Receipt Date: 20130916
  Transmission Date: 20140515
  Serious: No
  Sender: FDA-Public Use
  Company Number: US-009507513-1309USA005457

PATIENT
  Age: 21 Year
  Sex: Female
  Weight: 45.35 kg

DRUGS (6)
  1. NEXPLANON [Suspect]
     Indication: CONTRACEPTION
     Dosage: LEFT ARM
     Route: 059
     Dates: start: 20130910
  2. SOMA [Concomitant]
     Dosage: UNK
  3. XANAX [Concomitant]
     Dosage: UNK
  4. VALIUM [Concomitant]
     Dosage: UNK
  5. IRON (UNSPECIFIED) [Concomitant]
     Dosage: UNK
  6. ALBUTEROL [Concomitant]
     Dosage: UNK

REACTIONS (2)
  - Musculoskeletal pain [Unknown]
  - Pain in extremity [Unknown]
